FAERS Safety Report 15587681 (Version 2)
Quarter: 2019Q2

REPORT INFORMATION
  Report Type: Report from Study
  Country: US (occurrence: US)
  Receive Date: 20181105
  Receipt Date: 20190517
  Transmission Date: 20190711
  Serious: Yes (Other)
  Sender: FDA-Public Use
  Company Number: PHEH2018US046167

PATIENT
  Age: 57 Year
  Sex: Female

DRUGS (1)
  1. COSENTYX [Suspect]
     Active Substance: SECUKINUMAB
     Indication: PSORIASIS
     Dosage: 300 MG, QMO
     Route: 058
     Dates: start: 201507

REACTIONS (3)
  - Psoriasis [Unknown]
  - Gastric infection [Recovered/Resolved]
  - Gastric infection [Unknown]

NARRATIVE: CASE EVENT DATE: 201809
